FAERS Safety Report 8851702 (Version 1)
Quarter: 2012Q4

REPORT INFORMATION
  Report Type: 
  Country: US (occurrence: US)
  Receive Date: 20121022
  Receipt Date: 20121022
  Transmission Date: 20130627
  Serious: No
  Sender: FDA-Public Use
  Company Number: US-PFIZER INC-2012262397

PATIENT
  Age: 54 Year
  Sex: Male
  Weight: 88.44 kg

DRUGS (3)
  1. LIPITOR [Suspect]
     Indication: BLOOD CHOLESTEROL INCREASED
     Dosage: 80 mg, once daily
     Route: 048
     Dates: end: 20120923
  2. CARVEDILOL [Concomitant]
     Indication: HYPERTENSION
     Dosage: 3.125 mg, twice daily
  3. ZETIA [Concomitant]
     Dosage: 10 mg, once daily

REACTIONS (1)
  - Laboratory test abnormal [Unknown]
